FAERS Safety Report 18483425 (Version 4)
Quarter: 2021Q2

REPORT INFORMATION
  Report Type: Spontaneous
  Country: US (occurrence: US)
  Receive Date: 20201110
  Receipt Date: 20210617
  Transmission Date: 20210717
  Serious: No
  Sender: FDA-Public Use
  Company Number: US-ELI_LILLY_AND_COMPANY-US202011000522

PATIENT
  Age: 80 Year
  Sex: Male

DRUGS (5)
  1. HUMALOG [Interacting]
     Active Substance: INSULIN LISPRO
     Dosage: 9 UG, EACH EVENING
     Route: 058
     Dates: start: 194810
  2. HUMALOG [Suspect]
     Active Substance: INSULIN LISPRO
     Indication: DIABETES MELLITUS
     Dosage: 7 UG, EACH MORNING
     Route: 058
     Dates: start: 194810
  3. XTANDI [Interacting]
     Active Substance: ENZALUTAMIDE
     Dosage: 120 MG, DAILY
     Route: 048
  4. XTANDI [Interacting]
     Active Substance: ENZALUTAMIDE
     Indication: PROSTATE CANCER
     Dosage: 160 MG, DAILY
     Route: 048
     Dates: start: 20200714
  5. HUMALOG [Interacting]
     Active Substance: INSULIN LISPRO
     Dosage: UNK, UNKNOWN (INCREASED DOSE)
     Route: 058

REACTIONS (6)
  - Insomnia [Unknown]
  - Blood glucose increased [Recovered/Resolved]
  - Dehydration [Recovered/Resolved]
  - Drug interaction [Unknown]
  - Product distribution issue [Unknown]
  - Product availability issue [Unknown]

NARRATIVE: CASE EVENT DATE: 20200710
